FAERS Safety Report 8350119-8 (Version None)
Quarter: 2012Q2

REPORT INFORMATION
  Report Type: 
  Country: None (occurrence: None)
  Receive Date: 20120510
  Receipt Date: 20120507
  Transmission Date: 20120825
  Serious: Yes (Other)
  Sender: FDA-Public Use
  Company Number: CA-PURDUE-CAN-2012-0002978

PATIENT
  Age: 27 Year
  Sex: Male

DRUGS (1)
  1. DILAUDID [Suspect]
     Indication: PRODUCT USED FOR UNKNOWN INDICATION
     Dosage: UNK
     Route: 042

REACTIONS (9)
  - DRUG DEPENDENCE [None]
  - SUBSTANCE ABUSE [None]
  - LUNG INFECTION [None]
  - INFECTION [None]
  - CARDIAC DISORDER [None]
  - IMMUNODEFICIENCY [None]
  - INFECTIOUS DISEASE CARRIER [None]
  - PERICARDITIS INFECTIVE [None]
  - APPARENT DEATH [None]
